FAERS Safety Report 6348274-4 (Version None)
Quarter: 2009Q3

REPORT INFORMATION
  Report Type: 
  Country: None (occurrence: None)
  Receive Date: 20090910
  Receipt Date: 20090826
  Transmission Date: 20100115
  Serious: Yes (Other)
  Sender: FDA-Public Use
  Company Number: JP-GENENTECH-290155

PATIENT
  Sex: Male

DRUGS (8)
  1. AVASTIN [Suspect]
     Indication: RECTAL CANCER
     Dosage: 7.5 MG/KG, Q3W
     Route: 042
     Dates: start: 20080801, end: 20081112
  2. KYTRIL [Suspect]
     Indication: PROPHYLAXIS OF NAUSEA AND VOMITING
     Dosage: 3 MG, Q2W
     Route: 042
     Dates: start: 20081029, end: 20081112
  3. DEXAMETHASONE SODIUM PHOSPHATE [Suspect]
     Indication: DRUG USE FOR UNKNOWN INDICATION
     Dosage: 8 MG, Q2W
     Route: 042
     Dates: start: 20081029, end: 20081112
  4. CALCIUM LEVOFOLINATE [Suspect]
     Indication: COLORECTAL CANCER METASTATIC
     Dosage: 325 MG, Q2W
     Route: 042
     Dates: start: 20081029, end: 20081112
  5. FLUOROURACIL [Suspect]
     Indication: COLORECTAL CANCER METASTATIC
     Dosage: 4650 MG, Q2W
     Route: 042
     Dates: start: 20081029, end: 20081101
  6. TS-1 [Concomitant]
     Indication: DRUG USE FOR UNKNOWN INDICATION
     Dosage: UNK
     Dates: start: 20080801, end: 20081009
  7. AMLODINE [Concomitant]
     Indication: DRUG USE FOR UNKNOWN INDICATION
     Dosage: UNK
  8. DIOVAN [Concomitant]
     Indication: DRUG USE FOR UNKNOWN INDICATION
     Dosage: UNK

REACTIONS (1)
  - RENAL IMPAIRMENT [None]
